FAERS Safety Report 7547678-1 (Version None)
Quarter: 2011Q2

REPORT INFORMATION
  Report Type: 
  Country: None (occurrence: None)
  Receive Date: 20110614
  Receipt Date: 20100419
  Transmission Date: 20111010
  Serious: Yes (Hospitalization, Other)
  Sender: FDA-Public Use
  Company Number: DE-GENENTECH-320167

PATIENT
  Sex: Female

DRUGS (4)
  1. RANIBIZUMAB [Suspect]
     Indication: MACULAR DEGENERATION
     Dosage: UNK
     Route: 031
     Dates: start: 20080416
  2. RANIBIZUMAB [Suspect]
     Dosage: UNK
     Route: 031
     Dates: start: 20080611
  3. RANIBIZUMAB [Suspect]
     Dosage: UNK
     Route: 031
     Dates: start: 20090601
  4. RANIBIZUMAB [Suspect]
     Dosage: UNK
     Route: 031
     Dates: start: 20080515

REACTIONS (4)
  - METAMORPHOPSIA [None]
  - ABDOMINAL NEOPLASM [None]
  - OVARIAN CYST [None]
  - VISUAL ACUITY REDUCED [None]
